FAERS Safety Report 8181780-9 (Version None)
Quarter: 2012Q1

REPORT INFORMATION
  Report Type: 
  Country: None (occurrence: None)
  Receive Date: 20120302
  Receipt Date: 20111116
  Transmission Date: 20120608
  Serious: Yes (Other)
  Sender: FDA-Public Use
  Company Number: US-AMGEN-USASP2011060647

PATIENT
  Sex: Male

DRUGS (1)
  1. NPLATE [Suspect]
     Indication: WALDENSTROM'S MACROGLOBULINAEMIA
     Dates: start: 20110920, end: 20111115

REACTIONS (1)
  - DRUG INEFFECTIVE [None]
